FAERS Safety Report 11075380 (Version 2)
Quarter: 2016Q3

REPORT INFORMATION
  Report Type: Spontaneous
  Country: US (occurrence: US)
  Receive Date: 20150429
  Receipt Date: 20160721
  Transmission Date: 20161109
  Serious: Yes (Other)
  Sender: FDA-Public Use
  Company Number: US-PFIZER INC-2015147833

PATIENT
  Age: 62 Year
  Sex: Female

DRUGS (13)
  1. VENTOLIN HFA [Concomitant]
     Active Substance: ALBUTEROL SULFATE
     Indication: WHEEZING
     Dosage: UNK UNK, AS NEEDED (2 PUFF(S) INHALE EVERY 4-6 HOURS AROUND THE CLOCK AS NEEDED )
  2. FIORICET [Concomitant]
     Active Substance: ACETAMINOPHEN\BUTALBITAL\CAFFEINE
     Dosage: 1 DF, UNK [BUTALBITAL 50 MG, CAFFEINE 40 MG, PARACETAMOL 325 MG] EVERY 6-8 HOURS
     Route: 048
  3. AMOXIL [Concomitant]
     Active Substance: AMOXICILLIN
     Dosage: 500 MG, 3X/DAY
     Route: 048
  4. ERYTHROMYCIN. [Concomitant]
     Active Substance: ERYTHROMYCIN
     Dosage: 5 MG/G, UNK (1 CM RIBBON TO AFFECTED EYE UP TO 6 TIMES A DAY FOR 7 DAYS)
     Route: 047
  5. PREMARIN [Concomitant]
     Active Substance: ESTROGENS, CONJUGATED
     Dosage: 0.625 MG/G, DAILY (1 DAILY FOR TWO WEEKS, THEN REDUCE TO TWICE A WEEK)
     Route: 067
  6. NORCO [Concomitant]
     Active Substance: ACETAMINOPHEN\HYDROCODONE BITARTRATE
     Dosage: 1 DF, 3X/DAY [HYDROCODONE BITARTRATE 10 MG, PARACETAMOL 325 MG] EVERY 8 HOURS AROUND THE CLOCK
     Route: 048
  7. SINGULAIR [Concomitant]
     Active Substance: MONTELUKAST SODIUM
     Dosage: 10 MG, DAILY
     Route: 048
  8. LYRICA [Suspect]
     Active Substance: PREGABALIN
     Dosage: 150 MG, 2X/DAY
     Route: 048
  9. FLOMAX [Concomitant]
     Active Substance: TAMSULOSIN HYDROCHLORIDE
     Dosage: 0.4 MG, DAILY
     Route: 048
  10. KEFLEX [Concomitant]
     Active Substance: CEPHALEXIN
     Dosage: 500 MG, 3X/DAY
     Route: 048
  11. TIZANIDINE. [Concomitant]
     Active Substance: TIZANIDINE
     Dosage: 4 MG, 3X/DAY
     Route: 048
  12. PREMARIN [Concomitant]
     Active Substance: ESTROGENS, CONJUGATED
     Dosage: 0.625 MG/G,  REDUCE TO TWICE A WEEK
  13. VENTOLIN HFA [Concomitant]
     Active Substance: ALBUTEROL SULFATE
     Indication: COUGH
     Dosage: UNK UNK, 4X/DAY (90 MCG/ACTUATION AEROSOL INHALER 1-2 PUFF(S) INHALE EVERY 6 HOURS )

REACTIONS (6)
  - Spinal pain [Unknown]
  - Urinary retention [Unknown]
  - Back pain [Unknown]
  - Conjunctivitis viral [Unknown]
  - Neck pain [Unknown]
  - Muscle spasms [Unknown]

NARRATIVE: CASE EVENT DATE: 20150320
